FAERS Safety Report 7597477-X (Version None)
Quarter: 2011Q3

REPORT INFORMATION
  Report Type: 
  Country: None (occurrence: None)
  Receive Date: 20110708
  Receipt Date: 20110629
  Transmission Date: 20111222
  Serious: Yes (Death, Other)
  Sender: FDA-Public Use
  Company Number: PHHY2011DE59236

PATIENT
  Sex: Male
  Weight: 87 kg

DRUGS (10)
  1. NITROGLYCERIN [Concomitant]
     Indication: CORONARY ARTERY DISEASE
     Dosage: 100 UG/D
     Route: 048
     Dates: start: 20081016
  2. TORSEMIDE [Concomitant]
     Dosage: 20 MG/D
     Route: 048
     Dates: start: 20091005
  3. TORSEMIDE [Concomitant]
     Indication: HYPERTENSION
     Dosage: UNK
     Dates: start: 20050510, end: 20091005
  4. ALISKIREN [Suspect]
     Dosage: 1 DF, BID
     Route: 048
     Dates: start: 20091005
  5. BETA BLOCKING AGENTS [Concomitant]
  6. FLUVASTATIN [Concomitant]
     Indication: HYPERCHOLESTEROLAEMIA
     Dosage: 80 MG/D
     Route: 048
     Dates: start: 20070410
  7. ALISKIREN [Suspect]
     Indication: HYPERTENSION
     Dosage: 1 DF, QD
     Route: 048
     Dates: start: 20081016, end: 20091005
  8. PLATELETS [Concomitant]
  9. ZOPICLON [Concomitant]
     Indication: SLEEP DISORDER
     Dosage: 7.5 MG/D
     Route: 048
     Dates: start: 20090309
  10. ANTIDEPRESSANTS [Concomitant]

REACTIONS (6)
  - DYSPNOEA [None]
  - COMA [None]
  - BLOOD PRESSURE DECREASED [None]
  - BLOOD CREATININE INCREASED [None]
  - ANGINA PECTORIS [None]
  - SLEEP DISORDER [None]
